FAERS Safety Report 5612611-6 (Version None)
Quarter: 2008Q1

REPORT INFORMATION
  Report Type: 
  Country: None (occurrence: None)
  Receive Date: 20080128
  Receipt Date: 20080122
  Transmission Date: 20080703
  Serious: Yes (Other)
  Sender: FDA-Public Use
  Company Number: 2008002048

PATIENT
  Age: 4 Year
  Sex: Female

DRUGS (1)
  1. CHILDREN'S PEDIACARE LONG ACTING COUGH (DEXTROMETHORPHAN) [Suspect]
     Indication: COUGH
     Dosage: 1 TEASPOONFUL 1 TIME ONLY, ORAL
     Route: 048
     Dates: start: 20080119

REACTIONS (3)
  - FORMICATION [None]
  - HALLUCINATION, VISUAL [None]
  - SCREAMING [None]
